FAERS Safety Report 9512327 (Version 1)
Quarter: 2013Q3

REPORT INFORMATION
  Report Type: Spontaneous
  Country: US (occurrence: US)
  Receive Date: 20130910
  Receipt Date: 20130910
  Transmission Date: 20140515
  Serious: No
  Sender: FDA-Public Use
  Company Number: -SAAVPROD-BMS18711721

PATIENT
  Sex: Female

DRUGS (1)
  1. AVAPRO [Suspect]
     Dosage: 150

REACTIONS (2)
  - Dysgeusia [Unknown]
  - Medication error [Unknown]
